FAERS Safety Report 8506972-8 (Version None)
Quarter: 2012Q3

REPORT INFORMATION
  Report Type: 
  Country: None (occurrence: None)
  Receive Date: 20120712
  Receipt Date: 20120711
  Transmission Date: 20120928
  Serious: Yes (Hospitalization)
  Sender: FDA-Public Use
  Company Number: CA-AMGEN-CANCT2012035775

PATIENT
  Age: 44 Year
  Sex: Female
  Weight: 55.3 kg

DRUGS (26)
  1. VITAMIN D [Concomitant]
     Dosage: 200 IU, UNK
     Route: 048
     Dates: start: 20110811, end: 20120620
  2. PROCHLORPERAZINE [Concomitant]
     Route: 042
     Dates: start: 20120605, end: 20120605
  3. PACLITAXEL [Concomitant]
     Dosage: UNK
     Dates: start: 20110812, end: 20111028
  4. MOTRIN [Concomitant]
     Route: 048
     Dates: start: 20120601, end: 20120603
  5. DILAUDID [Concomitant]
     Dosage: 1 MG, UNK
     Route: 048
     Dates: start: 20120321, end: 20120413
  6. PROPOFOL [Concomitant]
     Route: 042
     Dates: start: 20120321, end: 20120321
  7. MAXERAN [Concomitant]
     Route: 042
     Dates: start: 20120604, end: 20120604
  8. CEPHALEXIN [Concomitant]
     Route: 048
     Dates: start: 20120423, end: 20120430
  9. ACETAMINOPHEN [Concomitant]
     Dosage: 1000 MG, UNK
     Route: 048
     Dates: start: 20110831
  10. LOPRESSOR [Concomitant]
     Route: 042
     Dates: start: 20120321, end: 20120321
  11. VERSED [Concomitant]
     Route: 042
     Dates: start: 20120321, end: 20120321
  12. XYLOCAINE [Concomitant]
     Route: 042
     Dates: start: 20120321, end: 20120321
  13. CYCLOPHOSPHAMIDE W/EPIRUBICIN/FLUOROURACIL [Concomitant]
     Dosage: UNK
     Dates: start: 20111104, end: 20120116
  14. CALCIUM [Concomitant]
     Dosage: 600 MG, UNK
     Route: 048
     Dates: start: 20110811, end: 20120620
  15. ATIVAN [Concomitant]
     Dosage: 1 MG, UNK
     Route: 048
     Dates: start: 20110817, end: 20120605
  16. CEFTRIAXONE [Concomitant]
     Route: 042
     Dates: start: 20120321, end: 20120322
  17. SUFENTANIL CITRATE [Concomitant]
     Route: 042
     Dates: start: 20120321, end: 20120321
  18. LACTATED RINGER'S [Concomitant]
     Dosage: UNK
     Route: 042
     Dates: start: 20120321, end: 20120322
  19. NAPROXEN [Concomitant]
     Route: 048
     Dates: start: 20120605, end: 20120606
  20. HEPARIN [Concomitant]
     Dosage: 5000 IU, UNK
     Route: 058
     Dates: start: 20120321, end: 20120607
  21. GRAVOL TAB [Concomitant]
     Dosage: 50 MG, UNK
     Route: 042
     Dates: start: 20120321, end: 20120604
  22. MORPHINE [Concomitant]
     Dosage: 5 MG, UNK
     Route: 042
     Dates: start: 20120321, end: 20120605
  23. KEFLEX [Concomitant]
     Dosage: 500 MG, UNK
     Route: 048
     Dates: start: 20120322, end: 20120429
  24. CHLORPROMAZINE HCL [Concomitant]
     Route: 042
     Dates: start: 20120605, end: 20120605
  25. DENOSUMAB [Suspect]
     Indication: BREAST CANCER
     Dosage: 120 MG, UNK
     Route: 058
     Dates: start: 20110811, end: 20120314
  26. ROCURONIUM BROMIDE [Concomitant]
     Route: 042
     Dates: start: 20120321, end: 20120321

REACTIONS (1)
  - CEREBRAL VENOUS THROMBOSIS [None]
